FAERS Safety Report 7860130-9 (Version None)
Quarter: 2011Q4

REPORT INFORMATION
  Report Type: 
  Country: None (occurrence: None)
  Receive Date: 20111027
  Receipt Date: 20111018
  Transmission Date: 20120403
  Serious: Yes (Hospitalization, Other)
  Sender: FDA-Public Use
  Company Number: US-JNJFOC-20110910284

PATIENT
  Sex: Male

DRUGS (4)
  1. REMICADE [Suspect]
     Route: 042
     Dates: start: 20050101
  2. REMICADE [Suspect]
     Indication: CROHN'S DISEASE
     Route: 042
     Dates: start: 20080301, end: 20080601
  3. PROGRAF [Concomitant]
     Indication: PROPHYLAXIS AGAINST TRANSPLANT REJECTION
     Route: 048
     Dates: start: 20080101
  4. PREDNISONE [Concomitant]
     Indication: CROHN'S DISEASE
     Route: 048
     Dates: start: 20080101

REACTIONS (10)
  - MULTI-ORGAN FAILURE [None]
  - ABDOMINAL PAIN [None]
  - INTESTINAL INFARCTION [None]
  - THROMBOSIS [None]
  - MOBILITY DECREASED [None]
  - RASH [None]
  - INFUSION RELATED REACTION [None]
  - HEPATIC FAILURE [None]
  - PNEUMONIA [None]
  - RED BLOOD CELL ABNORMALITY [None]
